FAERS Safety Report 8813990 (Version 2)
Quarter: 2012Q4

REPORT INFORMATION
  Report Type: Spontaneous
  Country: US (occurrence: None)
  Receive Date: 20120921
  Receipt Date: 20120926
  Transmission Date: 20130627
  Serious: Yes (Hospitalization)
  Sender: FDA-Public Use
  Company Number: 2012AP002997

PATIENT
  Age: 80 Year
  Sex: Male

DRUGS (4)
  1. CIPROFLOXACIN [Suspect]
     Indication: BORDETELLA INFECTION
     Route: 048
  2. CIPROFLOXACIN [Suspect]
     Indication: BORDETELLA INFECTION
     Route: 048
  3. CEFTRIAXONE [Concomitant]
  4. ERTAPENEM [Concomitant]

REACTIONS (11)
  - Fatigue [None]
  - Pyrexia [None]
  - Dizziness [None]
  - Lacunar infarction [None]
  - Pathogen resistance [None]
  - Embolic stroke [None]
  - Endocarditis [None]
  - Anaemia [None]
  - C-reactive protein increased [None]
  - Bordetella infection [None]
  - Neutropenia [None]
